FAERS Safety Report 23382933 (Version 5)
Quarter: 2024Q1

REPORT INFORMATION
  Report Type: Spontaneous
  Country: CH (occurrence: CH)
  Receive Date: 20240109
  Receipt Date: 20240212
  Transmission Date: 20240410
  Serious: Yes (Death, Hospitalization, Other)
  Sender: FDA-Public Use
  Company Number: CH-SA-2023SA405707

PATIENT
  Age: 89 Year
  Sex: Male

DRUGS (3)
  1. LIBTAYO [Suspect]
     Active Substance: CEMIPLIMAB-RWLC
     Indication: Basal cell carcinoma
     Dosage: 350 MG
     Route: 042
     Dates: start: 20230613, end: 20230725
  2. PHENPROCOUMON [Concomitant]
     Active Substance: PHENPROCOUMON
     Indication: Atrial fibrillation
     Dosage: 3 MG
     Route: 048
  3. LYRICA [Concomitant]
     Active Substance: PREGABALIN
     Indication: Prurigo
     Dosage: 25MG
     Route: 048
     Dates: end: 20231206

REACTIONS (5)
  - Renal failure [Fatal]
  - Sepsis [Recovered/Resolved]
  - Wound infection [Recovered/Resolved]
  - Skin ulcer [Recovered/Resolved]
  - Infection [Recovered/Resolved]

NARRATIVE: CASE EVENT DATE: 20230801
